FAERS Safety Report 4779713-8 (Version None)
Quarter: 2005Q3

REPORT INFORMATION
  Report Type: 
  Country: None (occurrence: None)
  Receive Date: 20050927
  Receipt Date: 20050819
  Transmission Date: 20060218
  Serious: Yes (Death)
  Sender: FDA-Public Use
  Company Number: FR-BRISTOL-MYERS SQUIBB COMPANY-13087267

PATIENT
  Sex: Female

DRUGS (2)
  1. ABILIFY [Suspect]
     Route: 048
  2. CITALOPRAM HYDROBROMIDE [Concomitant]

REACTIONS (1)
  - COMPLETED SUICIDE [None]
